FAERS Safety Report 12784304 (Version 1)
Quarter: 2016Q3

REPORT INFORMATION
  Report Type: Spontaneous
  Country: DE (occurrence: DE)
  Receive Date: 20160927
  Receipt Date: 20160927
  Transmission Date: 20161109
  Serious: Yes (Disabling, Other)
  Sender: FDA-Public Use
  Company Number: DE-BEH-200610231

PATIENT
  Age: 36 Year
  Sex: Female
  Weight: 60 kg

DRUGS (2)
  1. HAEMATE HS [Suspect]
     Active Substance: ANTIHEMOPHILIC FACTOR HUMAN
     Indication: HAEMORRHAGE
     Dosage: DAILY DOSE QUANTITY: 2000, DAILY DOSE UNIT: IU
     Route: 042
     Dates: start: 20061207
  2. HAEMATE HS [Suspect]
     Active Substance: ANTIHEMOPHILIC FACTOR HUMAN
     Indication: VON WILLEBRAND^S DISEASE
     Dosage: DAILY DOSE QUANTITY: 3000, DAILY DOSE UNIT: IU
     Route: 042
     Dates: start: 20060504

REACTIONS (10)
  - Drug ineffective [Recovered/Resolved]
  - Abdominal pain [Unknown]
  - Cardiac discomfort [Recovered/Resolved]
  - Dyspnoea [Recovered/Resolved]
  - Hypersensitivity [Unknown]
  - Blood pressure decreased [Unknown]
  - Von Willebrand^s factor inhibition [Unknown]
  - Headache [Recovered/Resolved]
  - Dizziness [Recovered/Resolved]
  - Angina pectoris [Recovered/Resolved]

NARRATIVE: CASE EVENT DATE: 20060504
